FAERS Safety Report 9127071 (Version 1)
Quarter: 2013Q1

REPORT INFORMATION
  Report Type: Spontaneous
  Country: US (occurrence: US)
  Receive Date: 20130125
  Receipt Date: 20130125
  Transmission Date: 20140127
  Serious: Yes (Other)
  Sender: FDA-Public Use
  Company Number: US-RB-048860-13

PATIENT
  Age: 12 Year
  Sex: Male

DRUGS (7)
  1. DELSYM ADULT ORANGE [Suspect]
     Dosage: 1 DOSE EVERY 12 HOURS
     Route: 048
     Dates: start: 20121231
  2. DELSYM ADULT ORANGE [Suspect]
     Indication: COUGH
     Route: 048
     Dates: start: 20130106
  3. SINGULAR [Concomitant]
     Indication: ASTHMA
  4. ALAVERT [Concomitant]
     Indication: ASTHMA
  5. PULMICORT INHALER [Concomitant]
     Indication: ASTHMA
  6. CEFTIN [Concomitant]
     Indication: PRODUCT USED FOR UNKNOWN INDICATION
  7. ZOFRAN [Concomitant]
     Indication: PRODUCT USED FOR UNKNOWN INDICATION

REACTIONS (5)
  - Swollen tongue [Not Recovered/Not Resolved]
  - Tongue disorder [Not Recovered/Not Resolved]
  - Hypersensitivity [Not Recovered/Not Resolved]
  - Vomiting [Not Recovered/Not Resolved]
  - Decreased appetite [Not Recovered/Not Resolved]
